APPROVED DRUG PRODUCT: ISOETHARINE HYDROCHLORIDE
Active Ingredient: ISOETHARINE HYDROCHLORIDE
Strength: 0.167%
Dosage Form/Route: SOLUTION;INHALATION
Application: A088226 | Product #001
Applicant: ROXANE LABORATORIES INC
Approved: Sep 16, 1983 | RLD: No | RS: No | Type: DISCN